FAERS Safety Report 7645722-4 (Version None)
Quarter: 2011Q3

REPORT INFORMATION
  Report Type: 
  Country: None (occurrence: None)
  Receive Date: 20110729
  Receipt Date: 20110725
  Transmission Date: 20111222
  Serious: Yes (Other)
  Sender: FDA-Public Use
  Company Number: US-ABBOTT-11P-163-0841847-00

PATIENT
  Sex: Male
  Weight: 113.5 kg

DRUGS (4)
  1. NIASPAN [Suspect]
     Indication: HIGH DENSITY LIPOPROTEIN DECREASED
     Dates: start: 20080625
  2. ASPIRIN [Concomitant]
     Indication: PRODUCT USED FOR UNKNOWN INDICATION
  3. PLAVIX [Concomitant]
     Indication: PRODUCT USED FOR UNKNOWN INDICATION
  4. BYSTOLIC [Concomitant]
     Indication: PRODUCT USED FOR UNKNOWN INDICATION

REACTIONS (7)
  - SKIN BURNING SENSATION [None]
  - PRURITUS GENERALISED [None]
  - DYSPNOEA [None]
  - CHEST DISCOMFORT [None]
  - FLUSHING [None]
  - CORONARY ARTERY OCCLUSION [None]
  - HYPERHIDROSIS [None]
